FAERS Safety Report 10256737 (Version 1)
Quarter: 2014Q2

REPORT INFORMATION
  Report Type: Report from Study
  Country: CZ (occurrence: CZ)
  Receive Date: 20140624
  Receipt Date: 20140624
  Transmission Date: 20141212
  Serious: Yes (Hospitalization)
  Sender: FDA-Public Use
  Company Number: CZ-JNJFOC-20131108159

PATIENT
  Sex: Female
  Weight: 105.22 kg

DRUGS (9)
  1. XARELTO [Suspect]
     Indication: EMBOLISM VENOUS
     Route: 048
     Dates: start: 20130722
  2. XARELTO [Suspect]
     Indication: EMBOLISM VENOUS
     Route: 048
     Dates: end: 20131010
  3. XARELTO [Suspect]
     Indication: DEEP VEIN THROMBOSIS
     Route: 048
     Dates: end: 20131010
  4. XARELTO [Suspect]
     Indication: DEEP VEIN THROMBOSIS
     Route: 048
     Dates: start: 20130722
  5. GLYVENOL [Concomitant]
     Indication: PERIPHERAL VENOUS DISEASE
     Route: 048
     Dates: end: 20131010
  6. PRESTANCE [Concomitant]
     Indication: HYPERTENSION
     Route: 048
  7. MAGNESIUM LACTATE [Concomitant]
     Indication: HYPOMAGNESAEMIA
     Route: 048
     Dates: end: 20131010
  8. ZODAC [Concomitant]
     Indication: RASH
     Route: 048
     Dates: start: 20130819, end: 20130821
  9. TORVACARD [Concomitant]
     Indication: HYPERCHOLESTEROLAEMIA
     Route: 048
     Dates: end: 20131010

REACTIONS (1)
  - Pulmonary embolism [Recovering/Resolving]
